FAERS Safety Report 11512565 (Version 1)
Quarter: 2015Q3

REPORT INFORMATION
  Report Type: Spontaneous
  Country: CN (occurrence: CN)
  Receive Date: 20150916
  Receipt Date: 20150916
  Transmission Date: 20151125
  Serious: Yes (Hospitalization, Other)
  Sender: FDA-Public Use
  Company Number: CN-VIIV HEALTHCARE LIMITED-CN2015GSK128436

PATIENT
  Age: 75 Year
  Sex: Female

DRUGS (5)
  1. COZAAR [Suspect]
     Active Substance: LOSARTAN POTASSIUM
     Indication: HYPERTENSION
     Dosage: UNK
     Route: 048
  2. HEPTODIN [Suspect]
     Active Substance: LAMIVUDINE
     Indication: HEPATITIS B
     Dosage: UNK
     Route: 048
     Dates: start: 2005
  3. HEPSERA [Suspect]
     Active Substance: ADEFOVIR DIPIVOXIL
     Indication: HEPATITIS B
     Dosage: 10 MG, QD (1 TABLET, QD)
     Route: 048
     Dates: start: 201507, end: 201507
  4. BETALOC [Suspect]
     Active Substance: METOPROLOL TARTRATE
     Indication: HYPERTENSION
     Route: 048
  5. ENTECAVIR. [Suspect]
     Active Substance: ENTECAVIR
     Indication: HEPATITIS B
     Dosage: 1 DF, QD (1 TABLET, QD)
     Route: 048
     Dates: start: 201507

REACTIONS (6)
  - Platelet count decreased [Recovering/Resolving]
  - Hepatitis B DNA increased [Unknown]
  - Transaminases increased [Unknown]
  - Gingival bleeding [Unknown]
  - Drug resistance [Unknown]
  - Haematochezia [Unknown]

NARRATIVE: CASE EVENT DATE: 201507
